FAERS Safety Report 15159896 (Version 5)
Quarter: 2019Q1

REPORT INFORMATION
  Report Type: Spontaneous
  Country: JP (occurrence: JP)
  Receive Date: 20180718
  Receipt Date: 20190222
  Transmission Date: 20190417
  Serious: Yes (Hospitalization, Other)
  Sender: FDA-Public Use
  Company Number: JP-GILEAD-2018-0349788

PATIENT
  Age: 55 Year
  Sex: Male
  Weight: 37 kg

DRUGS (3)
  1. CEFMETAZOLE SODIUM [Concomitant]
     Active Substance: CEFMETAZOLE SODIUM
     Indication: PNEUMONIA ASPIRATION
     Dosage: UNK
     Dates: start: 201806, end: 20180629
  2. VEMLIDY [Suspect]
     Active Substance: TENOFOVIR ALAFENAMIDE FUMARATE
     Indication: CHRONIC HEPATITIS B
     Dosage: 25MG, UNK
     Route: 048
     Dates: start: 20180319, end: 20180530
  3. BARACLUDE [Suspect]
     Active Substance: ENTECAVIR
     Indication: CHRONIC HEPATITIS B
     Dosage: UNK
     Route: 048
     Dates: start: 20080530, end: 20180318

REACTIONS (6)
  - Protein-losing gastroenteropathy [Recovering/Resolving]
  - Pyrexia [Recovered/Resolved]
  - Hypoalbuminaemia [Recovered/Resolved]
  - Dysphagia [Unknown]
  - Pneumonia aspiration [Recovering/Resolving]
  - Diarrhoea [Recovered/Resolved]

NARRATIVE: CASE EVENT DATE: 2018
